FAERS Safety Report 10077784 (Version 3)
Quarter: 2014Q2

REPORT INFORMATION
  Report Type: Report from Study
  Country: CA (occurrence: CA)
  Receive Date: 20140414
  Receipt Date: 20140617
  Transmission Date: 20141212
  Serious: Yes (Death, Other)
  Sender: FDA-Public Use
  Company Number: CA-GILEAD-2014-0099588

PATIENT
  Sex: Male

DRUGS (1)
  1. ADEFOVIR DIPIVOXIL [Suspect]
     Indication: HEPATITIS B
     Dosage: 10 MG, UNK
     Route: 065
     Dates: start: 20080520, end: 2013

REACTIONS (1)
  - Hepatocellular carcinoma [Fatal]
